FAERS Safety Report 4350740-8 (Version None)
Quarter: 2004Q2

REPORT INFORMATION
  Report Type: 
  Country: None (occurrence: None)
  Receive Date: 20040427
  Receipt Date: 20040415
  Transmission Date: 20050107
  Serious: Yes (Hospitalization)
  Sender: FDA-Public Use
  Company Number: US-JNJFOC-20040403457

PATIENT
  Age: 66 Year
  Sex: Female
  Weight: 100.6985 kg

DRUGS (7)
  1. ULTRACET [Suspect]
     Indication: ARTHRITIS
     Dosage: 1 DOSE(S), 2 IN 1 DAY, ORAL
     Route: 048
  2. LASIX [Concomitant]
  3. DETROL [Concomitant]
  4. LIBROX (ALL OTHER THERAPEUTIC PROUCTS) [Concomitant]
  5. LISINOPRIL [Concomitant]
  6. EVISTA [Concomitant]
  7. DARVOCET [Concomitant]

REACTIONS (2)
  - COUGH [None]
  - SKELETAL INJURY [None]
